FAERS Safety Report 19898146 (Version 3)
Quarter: 2021Q4

REPORT INFORMATION
  Report Type: Spontaneous
  Country: US (occurrence: US)
  Receive Date: 20210930
  Receipt Date: 20211224
  Transmission Date: 20220304
  Serious: No
  Sender: FDA-Public Use
  Company Number: US-BAUSCH-BL-2021-032166

PATIENT
  Age: 69 Year
  Sex: Male
  Weight: 88.984 kg

DRUGS (2)
  1. SECONAL SODIUM [Suspect]
     Active Substance: SECOBARBITAL SODIUM
     Indication: Sleep disorder
     Dosage: 350MG ONCE A DAY AT NIGHT
     Route: 065
  2. SECONAL SODIUM [Suspect]
     Active Substance: SECOBARBITAL SODIUM
     Indication: Insomnia

REACTIONS (5)
  - Feeling abnormal [Not Recovered/Not Resolved]
  - Insomnia [Not Recovered/Not Resolved]
  - Weight decreased [Not Recovered/Not Resolved]
  - Product dose omission issue [Unknown]
  - Product availability issue [Unknown]

NARRATIVE: CASE EVENT DATE: 20180101
